FAERS Safety Report 7473215-6 (Version None)
Quarter: 2011Q2

REPORT INFORMATION
  Report Type: 
  Country: None (occurrence: None)
  Receive Date: 20110511
  Receipt Date: 20110509
  Transmission Date: 20111010
  Serious: Yes (Death, Other)
  Sender: FDA-Public Use
  Company Number: B0699715A

PATIENT
  Sex: Male
  Weight: 89.3 kg

DRUGS (29)
  1. SIMVASTATIN [Concomitant]
  2. GASTRO [Concomitant]
  3. WHOLE BLOOD [Concomitant]
     Route: 042
     Dates: start: 20091224, end: 20091224
  4. WHOLE BLOOD [Concomitant]
     Route: 042
     Dates: start: 20100126, end: 20100126
  5. WHOLE BLOOD [Concomitant]
     Route: 042
     Dates: start: 20100301, end: 20100301
  6. WHOLE BLOOD [Concomitant]
     Route: 042
     Dates: start: 20100304, end: 20100304
  7. LENALIDOMIDE [Suspect]
     Dosage: 10MG PER DAY
     Route: 048
     Dates: start: 20071227, end: 20080623
  8. METOLAZONE [Concomitant]
  9. WHOLE BLOOD [Concomitant]
     Route: 042
     Dates: start: 20100121, end: 20100121
  10. WHOLE BLOOD [Concomitant]
     Route: 042
     Dates: start: 20100214, end: 20100214
  11. SPIRONOLACTONE [Concomitant]
  12. DOPAMINE HCL [Concomitant]
     Dates: start: 20100301
  13. PREDNISONE [Suspect]
     Dates: start: 20071227
  14. LOSARTAN [Concomitant]
  15. NEUPOGEN [Concomitant]
     Indication: NEUTROPENIA
     Dates: start: 20080117, end: 20090217
  16. WHOLE BLOOD [Concomitant]
     Route: 042
     Dates: start: 20090331, end: 20090331
  17. WHOLE BLOOD [Concomitant]
     Route: 042
     Dates: start: 20100218, end: 20100218
  18. EPOETIN BETA [Concomitant]
     Dates: start: 20080326, end: 20100319
  19. FUROSEMIDE [Concomitant]
  20. WHOLE BLOOD [Concomitant]
     Route: 042
     Dates: start: 20100207, end: 20100207
  21. WHOLE BLOOD [Concomitant]
     Route: 042
     Dates: start: 20100223, end: 20100223
  22. MELPHALAN HYDROCHLORIDE [Suspect]
     Dates: start: 20071227, end: 20081022
  23. RECORMON [Concomitant]
  24. OXYGEN [Concomitant]
  25. NEUPOGEN [Concomitant]
     Indication: PANCYTOPENIA
     Route: 042
     Dates: start: 20070801
  26. WHOLE BLOOD [Concomitant]
     Route: 042
     Dates: start: 20091206, end: 20091207
  27. PLACEBO [Suspect]
  28. WHOLE BLOOD [Concomitant]
     Indication: PANCYTOPENIA
     Route: 042
     Dates: start: 20090128, end: 20090331
  29. WHOLE BLOOD [Concomitant]
     Route: 042
     Dates: start: 20100106, end: 20100106

REACTIONS (2)
  - MYOCARDIAL ISCHAEMIA [None]
  - ACUTE MYELOID LEUKAEMIA [None]
